FAERS Safety Report 25603495 (Version 1)
Quarter: 2025Q3

REPORT INFORMATION
  Report Type: Spontaneous
  Country: JP (occurrence: JP)
  Receive Date: 20250724
  Receipt Date: 20250724
  Transmission Date: 20251020
  Serious: Yes (Hospitalization)
  Sender: MERCK SHARP & DOHME LLC
  Company Number: JP-009507513-2301613

PATIENT
  Age: 75 Year

DRUGS (2)
  1. KEYTRUDA [Suspect]
     Active Substance: PEMBROLIZUMAB
     Indication: Bladder transitional cell carcinoma stage IV
     Route: 041
     Dates: start: 20250402, end: 20250402
  2. PADCEV [Suspect]
     Active Substance: ENFORTUMAB VEDOTIN-EJFV
     Indication: Bladder transitional cell carcinoma stage IV
     Route: 041
     Dates: start: 20250402, end: 20250402

REACTIONS (3)
  - Motor dysfunction [Recovering/Resolving]
  - Guillain-Barre syndrome [Unknown]
  - Rash [Unknown]

NARRATIVE: CASE EVENT DATE: 20250401
